FAERS Safety Report 9994496 (Version 1)
Quarter: 2014Q1

REPORT INFORMATION
  Report Type: Spontaneous
  Country: US (occurrence: US)
  Receive Date: 20140311
  Receipt Date: 20140311
  Transmission Date: 20141002
  Serious: Yes (Hospitalization)
  Sender: FDA-Public Use
  Company Number: US-BIOGENIDEC-2014BI019635

PATIENT
  Age: 63 Year
  Sex: Female

DRUGS (12)
  1. TECFIDERA [Suspect]
     Indication: MULTIPLE SCLEROSIS
     Route: 048
  2. LOW DOSE ASPIRIN [Concomitant]
  3. CENTRUM SILVER ADULT 50+ [Concomitant]
  4. DIVALPROEX SODIUM ER [Concomitant]
  5. DULOXETINE HCI [Concomitant]
  6. LISINOPRIL-HYDROCHLOROTHIAZIDE, [Concomitant]
  7. OMEPRAZOLE [Concomitant]
  8. PROVENTIL HFA [Concomitant]
  9. SYMBICORT [Concomitant]
  10. TEMAZEPAM [Concomitant]
  11. TRAMADOL HCI [Concomitant]
  12. TRAZADONE [Concomitant]

REACTIONS (2)
  - Meningioma [Not Recovered/Not Resolved]
  - Post procedural complication [Not Recovered/Not Resolved]
